FAERS Safety Report 25100767 (Version 2)
Quarter: 2025Q1

REPORT INFORMATION
  Report Type: Spontaneous
  Country: US (occurrence: US)
  Receive Date: 20250320
  Receipt Date: 20250324
  Transmission Date: 20250408
  Serious: Yes (Hospitalization, Other)
  Sender: PFIZER
  Company Number: US-PFIZER INC-PV202500033253

PATIENT
  Age: 81 Year
  Sex: Male

DRUGS (1)
  1. INLYTA [Suspect]
     Active Substance: AXITINIB
     Dates: end: 20250313

REACTIONS (14)
  - Confusional state [Unknown]
  - Chest pain [Unknown]
  - Dyspnoea [Unknown]
  - Blood pressure increased [Unknown]
  - Dementia [Unknown]
  - Anxiety [Recovering/Resolving]
  - Fatigue [Unknown]
  - Aggression [Recovering/Resolving]
  - Insomnia [Recovering/Resolving]
  - Rash [Unknown]
  - Skin haemorrhage [Unknown]
  - Rash pruritic [Unknown]
  - Rash erythematous [Unknown]
  - Scratch [Unknown]
